FAERS Safety Report 8555435-2 (Version None)
Quarter: 2012Q3

REPORT INFORMATION
  Report Type: 
  Country: None (occurrence: None)
  Receive Date: 20120731
  Receipt Date: 20110825
  Transmission Date: 20120928
  Serious: Yes (Other)
  Sender: FDA-Public Use
  Company Number: US-ASTRAZENECA-2011SE12606

PATIENT
  Age: 14912 Day
  Sex: Male
  Weight: 80.7 kg

DRUGS (13)
  1. ZOLOFT [Concomitant]
     Dates: start: 20091104
  2. PERCOCET [Concomitant]
     Indication: PAIN MANAGEMENT
     Dosage: 10/650 ONE TABLET EVERY 4 HOURS
     Dates: start: 20091104
  3. METHADON HYDROCHLORIDE TAB [Concomitant]
     Indication: PAIN MANAGEMENT
     Dates: start: 20091104
  4. EFFEXOR [Concomitant]
  5. SEROQUEL [Suspect]
     Route: 048
     Dates: start: 20040101
  6. NEURONTIN [Concomitant]
  7. ELAVIL [Concomitant]
  8. TRILEPTAL [Concomitant]
  9. SEROQUEL [Suspect]
     Route: 048
     Dates: start: 20091104
  10. METHADON HYDROCHLORIDE TAB [Concomitant]
     Dates: start: 20091204
  11. TOPAMAX [Concomitant]
  12. CYMBALTA [Concomitant]
  13. LYRICA [Concomitant]

REACTIONS (3)
  - TYPE 2 DIABETES MELLITUS [None]
  - PANCREATITIS [None]
  - DIABETIC COMA [None]
